FAERS Safety Report 12374913 (Version 1)
Quarter: 2016Q2

REPORT INFORMATION
  Report Type: Spontaneous
  Country: BR (occurrence: BR)
  Receive Date: 20160517
  Receipt Date: 20160517
  Transmission Date: 20160815
  Serious: Yes (Other)
  Sender: FDA-Public Use
  Company Number: BR-ROCHE-1758174

PATIENT
  Age: 50 Year
  Sex: Female
  Weight: 60.6 kg

DRUGS (6)
  1. TRASTUZUMAB [Suspect]
     Active Substance: TRASTUZUMAB
     Indication: BREAST CANCER
     Route: 042
     Dates: start: 20150416, end: 20150416
  2. VINORELBINE [Concomitant]
     Active Substance: VINORELBINE\VINORELBINE TARTRATE
     Dosage: ON THE SAME DAY OF VINORELBINE 30 MG
     Route: 048
     Dates: start: 20150415, end: 20150421
  3. ONDANSETRON [Concomitant]
     Active Substance: ONDANSETRON
     Indication: VOMITING
     Dosage: 1 UNIT 40 MINUTES BEFORE CHEMOTHERAPY
     Route: 048
     Dates: start: 20150416, end: 20150416
  4. RANITIDINE. [Concomitant]
     Active Substance: RANITIDINE
     Indication: ULCER
     Dosage: 1 UNIT AT NIGHT
     Route: 048
     Dates: start: 20150415, end: 20150514
  5. VINORELBINE [Concomitant]
     Active Substance: VINORELBINE\VINORELBINE TARTRATE
     Indication: BREAST CANCER
     Route: 048
     Dates: start: 20150415, end: 20150421
  6. DIPYRONE [Concomitant]
     Active Substance: DIPYRONE
     Indication: PAIN
     Route: 065
     Dates: start: 20150415, end: 20150430

REACTIONS (5)
  - Breast pain [Recovered/Resolved]
  - Chest pain [Recovered/Resolved]
  - Headache [Recovered/Resolved]
  - Chills [Recovered/Resolved]
  - Malaise [Recovered/Resolved]

NARRATIVE: CASE EVENT DATE: 20150416
